FAERS Safety Report 11109322 (Version 1)
Quarter: 2015Q2

REPORT INFORMATION
  Report Type: Spontaneous
  Country: US (occurrence: None)
  Receive Date: 20150511
  Receipt Date: 20150511
  Transmission Date: 20150821
  Serious: Yes (Disabling, Other)
  Sender: FDA-Public Use
  Company Number: None

PATIENT
  Age: 58 Year
  Sex: Female
  Weight: 71.22 kg

DRUGS (9)
  1. CYMBALTA [Concomitant]
     Active Substance: DULOXETINE HYDROCHLORIDE
  2. NARCO [Concomitant]
     Indication: CHEST PAIN
  3. TRAZODONE [Concomitant]
     Active Substance: TRAZODONE HYDROCHLORIDE
  4. ELECTRONIC STIMULATOR IMPLANT [Concomitant]
  5. NITROGLYCERIN. [Suspect]
     Active Substance: NITROGLYCERIN
     Indication: ANGINA PECTORIS
     Dosage: 1 SMALL WHITE PILL,TAKEN UNDER THE TONGUE
  6. SYNTHROID [Concomitant]
     Active Substance: LEVOTHYROXINE SODIUM
  7. NARCO [Concomitant]
  8. LIDOCAINE PATCH [Concomitant]
     Active Substance: LIDOCAINE
  9. MORPHINEER [Concomitant]

REACTIONS (15)
  - Pain in extremity [None]
  - Asthenia [None]
  - Headache [None]
  - Exaggerated startle response [None]
  - Muscle twitching [None]
  - Dyskinesia [None]
  - Paraesthesia [None]
  - Tremor [None]
  - Reflexes abnormal [None]
  - Aphasia [None]
  - Muscle spasms [None]
  - Costochondritis [None]
  - Injury [None]
  - Pain [None]
  - Chest discomfort [None]

NARRATIVE: CASE EVENT DATE: 20150504
